FAERS Safety Report 6259738-6 (Version None)
Quarter: 2009Q3

REPORT INFORMATION
  Report Type: 
  Country: None (occurrence: None)
  Receive Date: 20090706
  Receipt Date: 20090706
  Transmission Date: 20100115
  Serious: Yes (Other)
  Sender: FDA-Public Use
  Company Number: None

PATIENT
  Age: 46 Year
  Sex: Female
  Weight: 86.637 kg

DRUGS (5)
  1. FLUCONAZOLE [Suspect]
     Indication: CANDIDIASIS
     Dosage: 1 PER WEEK PO
     Route: 048
     Dates: start: 20090614, end: 20090621
  2. MINOCYCLINE HCL [Concomitant]
  3. ZITHROMAZ [Concomitant]
  4. FOLIC ACID [Concomitant]
  5. NAPROXEN [Concomitant]

REACTIONS (31)
  - ABDOMINAL DISTENSION [None]
  - ABDOMINAL PAIN [None]
  - ABDOMINAL PAIN UPPER [None]
  - ANAL PRURITUS [None]
  - BREAST MASS [None]
  - BREAST PAIN [None]
  - BREAST SWELLING [None]
  - CANDIDIASIS [None]
  - CHANGE OF BOWEL HABIT [None]
  - CONDITION AGGRAVATED [None]
  - DIARRHOEA [None]
  - DRUG INEFFECTIVE [None]
  - FAECES DISCOLOURED [None]
  - FUNGAL INFECTION [None]
  - FUNGAL SKIN INFECTION [None]
  - HAEMORRHOIDS [None]
  - HORMONE LEVEL ABNORMAL [None]
  - IMPAIRED WORK ABILITY [None]
  - INSOMNIA [None]
  - LIVER INJURY [None]
  - NIPPLE SWELLING [None]
  - PREMENSTRUAL SYNDROME [None]
  - PRODUCT SUBSTITUTION ISSUE [None]
  - PRODUCT TASTE ABNORMAL [None]
  - PRURITUS [None]
  - SKIN EXFOLIATION [None]
  - SKIN ODOUR ABNORMAL [None]
  - URINE COLOUR ABNORMAL [None]
  - URINE ODOUR ABNORMAL [None]
  - VAGINAL DISCHARGE [None]
  - VULVOVAGINAL PRURITUS [None]
